FAERS Safety Report 11589858 (Version 2)
Quarter: 2015Q4

REPORT INFORMATION
  Report Type: Spontaneous
  Country: US (occurrence: US)
  Receive Date: 20151002
  Receipt Date: 20151228
  Transmission Date: 20160304
  Serious: Yes (Other)
  Sender: FDA-Public Use
  Company Number: US-ENDO PHARMACEUTICALS INC.-2015-003141

PATIENT
  Age: 42 Year
  Sex: Male
  Weight: 70.37 kg

DRUGS (3)
  1. TESTIM [Suspect]
     Active Substance: TESTOSTERONE
     Dosage: STARTED WITH HALF TUBE AND THEN INCREASED TO FULL TUBE ON EACH SHOULDER
     Route: 062
     Dates: start: 201301, end: 201403
  2. VIAGRA [Concomitant]
     Active Substance: SILDENAFIL CITRATE
     Indication: ERECTILE DYSFUNCTION
     Route: 065
     Dates: start: 200701
  3. TESTIM [Suspect]
     Active Substance: TESTOSTERONE
     Indication: ANDROGEN REPLACEMENT THERAPY
     Dosage: STARTED WITH HALF TUBE AND THEN INCREASED TO FULL TUBE ON EACH SHOULDER
     Route: 062
     Dates: start: 200801, end: 201205

REACTIONS (3)
  - Polycythaemia [Not Recovered/Not Resolved]
  - Pulmonary valve incompetence [Not Recovered/Not Resolved]
  - Diastolic dysfunction [Not Recovered/Not Resolved]

NARRATIVE: CASE EVENT DATE: 20120202
